FAERS Safety Report 5361730-0 (Version None)
Quarter: 2007Q2

REPORT INFORMATION
  Report Type: 
  Country: None (occurrence: None)
  Receive Date: 20070619
  Receipt Date: 20070529
  Transmission Date: 20071010
  Serious: Yes (Other)
  Sender: FDA-Public Use
  Company Number: PHBS2007JP01569

PATIENT
  Age: 38 Year
  Sex: Male

DRUGS (5)
  1. TEGRETOL [Suspect]
     Indication: EPILEPSY
     Dosage: 600 MG/DAY
     Route: 048
     Dates: end: 20070426
  2. LANDSEN [Concomitant]
     Dosage: 1 MG/DAY
     Route: 048
  3. DEPAKENE [Concomitant]
     Dosage: 400 MG/DAY
     Route: 048
  4. SELBEX [Concomitant]
     Dosage: 150 MG/DAY
     Route: 048
  5. NAUZELIN [Concomitant]
     Dosage: 10 MG/DAY
     Route: 048

REACTIONS (3)
  - HALLUCINATION, AUDITORY [None]
  - PERSECUTORY DELUSION [None]
  - SCHIZOPHRENIFORM DISORDER [None]
